FAERS Safety Report 13449999 (Version 1)
Quarter: 2017Q2

REPORT INFORMATION
  Report Type: Spontaneous
  Country: FR (occurrence: FR)
  Receive Date: 20170417
  Receipt Date: 20170417
  Transmission Date: 20170830
  Serious: Yes (Death)
  Sender: FDA-Public Use
  Company Number: FR-BAUSCH-BL-2017-009630

PATIENT
  Age: 45 Year
  Sex: Female

DRUGS (10)
  1. EPIRUBICINE [Suspect]
     Active Substance: EPIRUBICIN
     Indication: INFLAMMATORY CARCINOMA OF THE BREAST
     Dosage: EVERY CYCLE
     Route: 042
     Dates: start: 20050201, end: 20050201
  2. METHOTREXATE. [Concomitant]
     Active Substance: METHOTREXATE
     Indication: PRODUCT USED FOR UNKNOWN INDICATION
     Dates: start: 20051220, end: 20070820
  3. CYCLOPHOSPHAMIDE. [Suspect]
     Active Substance: CYCLOPHOSPHAMIDE
     Indication: INFLAMMATORY CARCINOMA OF THE BREAST
     Dosage: EVERY CYCLE
     Route: 042
     Dates: start: 20050201, end: 20050201
  4. CYCLOPHOSPHAMIDE. [Suspect]
     Active Substance: CYCLOPHOSPHAMIDE
     Dosage: EVERY CYCLE
     Route: 042
     Dates: start: 20050315, end: 20050315
  5. FLUOROURACIL. [Suspect]
     Active Substance: FLUOROURACIL
     Dosage: EVERY CYCLE
     Route: 042
     Dates: start: 20051117, end: 20051117
  6. DOCETAXEL. [Suspect]
     Active Substance: DOCETAXEL
     Dosage: EVERY CYCLE
     Route: 042
     Dates: start: 20051117, end: 20051117
  7. FLUOROURACIL. [Suspect]
     Active Substance: FLUOROURACIL
     Indication: INFLAMMATORY CARCINOMA OF THE BREAST
     Dosage: EVERY CYCLE
     Route: 042
     Dates: start: 20050905, end: 20050905
  8. DOCETAXEL. [Suspect]
     Active Substance: DOCETAXEL
     Indication: INFLAMMATORY CARCINOMA OF THE BREAST
     Dosage: EVERY CYCLE
     Route: 042
     Dates: start: 20050905, end: 20050905
  9. EPIRUBICINE [Suspect]
     Active Substance: EPIRUBICIN
     Dosage: EVERY CYCLE
     Route: 042
     Dates: start: 20050315, end: 20050315
  10. TRASTUZUMAB [Concomitant]
     Active Substance: TRASTUZUMAB
     Indication: PRODUCT USED FOR UNKNOWN INDICATION
     Dates: start: 20051220, end: 20060503

REACTIONS (1)
  - Refractory anaemia with an excess of blasts [Fatal]

NARRATIVE: CASE EVENT DATE: 20071201
